FAERS Safety Report 19875143 (Version 1)
Quarter: 2021Q3

REPORT INFORMATION
  Report Type: Spontaneous
  Country: US (occurrence: US)
  Receive Date: 20210923
  Receipt Date: 20210923
  Transmission Date: 20211014
  Serious: Yes (Other)
  Sender: FDA-Public Use
  Company Number: US-GW PHARMA-202109USGW04554

PATIENT

DRUGS (1)
  1. EPIDIOLEX [Suspect]
     Active Substance: CANNABIDIOL
     Indication: LENNOX-GASTAUT SYNDROME
     Dosage: 750 MILLIGRAM (FIRST SHIPPED ON 12 JUL 2019)
     Route: 048
     Dates: start: 201907

REACTIONS (2)
  - Seizure [Unknown]
  - Product dose omission issue [Unknown]
